FAERS Safety Report 9865909 (Version 1)
Quarter: 2014Q1

REPORT INFORMATION
  Report Type: Spontaneous
  Country: US (occurrence: US)
  Receive Date: 20140203
  Receipt Date: 20140203
  Transmission Date: 20141002
  Serious: No
  Sender: FDA-Public Use
  Company Number: US-ALLERGAN-1313328US

PATIENT
  Age: 76 Year
  Sex: Female

DRUGS (12)
  1. RESTASIS [Suspect]
     Indication: DRY EYE
     Dosage: 2 GTT, BID
     Route: 047
     Dates: start: 201304
  2. REFRESH P.M. [Concomitant]
     Indication: DRY EYE
     Dosage: 2 RIBBONS, QHS
     Route: 047
  3. METFORMIN [Concomitant]
     Indication: DIABETES MELLITUS
     Dosage: UNK
     Route: 048
  4. AMLODIPINE [Concomitant]
     Indication: HYPERTENSION
     Dosage: UNK
     Route: 048
  5. MOBIC [Concomitant]
     Indication: ARTHRITIS
     Dosage: 7.5 MG, QD
     Route: 048
  6. LOSARTAN [Concomitant]
     Indication: HYPERTENSION
     Dosage: 100 MG, QD
     Route: 048
  7. EFFEXOR [Concomitant]
     Indication: MOOD ALTERED
     Dosage: 75 MG, QHS
     Route: 048
  8. NEURONTIN [Concomitant]
     Indication: NEUROPATHY PERIPHERAL
     Dosage: UNK
     Route: 048
  9. NEURONTIN [Concomitant]
     Indication: PAIN IN EXTREMITY
  10. NEURONTIN [Concomitant]
     Indication: ARTHRITIS
  11. SYSTANE BALANCE [Concomitant]
     Indication: DRY EYE
     Dosage: 2 GTT, QID
     Route: 047
  12. EPIDURAL MEDICATION (NOS) [Concomitant]
     Indication: BACK PAIN
     Dosage: UNK, EVERY 3 MONTHS

REACTIONS (3)
  - Arthritis [Unknown]
  - Fatigue [Not Recovered/Not Resolved]
  - Eye pain [Recovered/Resolved]
